FAERS Safety Report 23733561 (Version 1)
Quarter: 2024Q2

REPORT INFORMATION
  Report Type: Spontaneous
  Country: US (occurrence: US)
  Receive Date: 20240411
  Receipt Date: 20240411
  Transmission Date: 20240716
  Serious: No
  Sender: FDA-Public Use
  Company Number: US-BEH-2024170355

PATIENT
  Sex: Female

DRUGS (22)
  1. HIZENTRA [Suspect]
     Active Substance: HUMAN IMMUNOGLOBULIN G
     Indication: Stiff person syndrome
     Dosage: 55 G (25 G DAY 1 PLUS 30 G DAY 2), QW
     Route: 058
     Dates: start: 20220301
  2. DOXYCYCLINE HYCLATE [Concomitant]
     Active Substance: DOXYCYCLINE HYCLATE
  3. DOXYCYCLINE [Concomitant]
     Active Substance: DOXYCYCLINE
  4. ULTOMIRIS [Concomitant]
     Active Substance: RAVULIZUMAB-CWVZ
  5. DICLOFENAC [Concomitant]
     Active Substance: DICLOFENAC
  6. FIRDAPSE [Concomitant]
     Active Substance: AMIFAMPRIDINE PHOSPHATE
  7. GABAPENTIN [Concomitant]
     Active Substance: GABAPENTIN
  8. HYDROCODONE [Concomitant]
     Active Substance: HYDROCODONE
  9. IRON [Concomitant]
     Active Substance: IRON
  10. MINOCYCLINE [Concomitant]
     Active Substance: MINOCYCLINE HYDROCHLORIDE
  11. MUPIROCIN [Concomitant]
     Active Substance: MUPIROCIN
  12. ONDANSETRON [Concomitant]
     Active Substance: ONDANSETRON
  13. PREDNISONE [Concomitant]
     Active Substance: PREDNISONE
  14. PROMETHAZINE [Concomitant]
     Active Substance: PROMETHAZINE HYDROCHLORIDE
  15. PYRIDOSTIGMINE [Concomitant]
     Active Substance: PYRIDOSTIGMINE
  16. SUMATRIPTAN [Concomitant]
     Active Substance: SUMATRIPTAN
  17. VENTOLIN HFA [Concomitant]
     Active Substance: ALBUTEROL SULFATE
  18. VITAMIN D NOS [Concomitant]
     Active Substance: VITAMIN D NOS
  19. ALCLOMETASONE DIPROPIONATE [Concomitant]
     Active Substance: ALCLOMETASONE DIPROPIONATE
  20. VOLTAREN [Concomitant]
     Active Substance: DICLOFENAC SODIUM
  21. TRIAMCINOLONE ACETONIDE [Concomitant]
     Active Substance: TRIAMCINOLONE ACETONIDE
  22. ALCLOMETASONA [Concomitant]

REACTIONS (2)
  - Infusion site discharge [Recovered/Resolved]
  - Off label use [Unknown]
